FAERS Safety Report 23512759 (Version 1)
Quarter: 2024Q1

REPORT INFORMATION
  Report Type: Spontaneous
  Country: US (occurrence: US)
  Receive Date: 20240212
  Receipt Date: 20240212
  Transmission Date: 20240410
  Serious: No
  Sender: FDA-Public Use
  Company Number: US-ALCON LABORATORIES-ALC2023US003708

PATIENT
  Sex: Female

DRUGS (1)
  1. RHOPRESSA [Suspect]
     Active Substance: NETARSUDIL MESYLATE
     Indication: Intraocular pressure test
     Dosage: 1 DROP IN EACH EYE, QD (ONCE DAILY)
     Route: 047
     Dates: start: 20210330, end: 20210506

REACTIONS (1)
  - Drug ineffective [Unknown]
